FAERS Safety Report 9285444 (Version 1)
Quarter: 2013Q2

REPORT INFORMATION
  Report Type: Spontaneous
  Country: US (occurrence: US)
  Receive Date: 20130513
  Receipt Date: 20130513
  Transmission Date: 20140414
  Serious: No
  Sender: FDA-Public Use
  Company Number: US-PFIZER INC-2013145066

PATIENT
  Age: 61 Year
  Sex: Female
  Weight: 109.75 kg

DRUGS (1)
  1. SPIRONOLACTONE [Suspect]
     Indication: ALOPECIA
     Dosage: 50 MG, 2X/DAY
     Route: 048

REACTIONS (3)
  - Drug ineffective for unapproved indication [Unknown]
  - Hair growth abnormal [Unknown]
  - Abnormal behaviour [Unknown]
